FAERS Safety Report 7426905-5 (Version None)
Quarter: 2011Q2

REPORT INFORMATION
  Report Type: 
  Country: None (occurrence: None)
  Receive Date: 20110414
  Receipt Date: 20110329
  Transmission Date: 20111010
  Serious: Yes (Other)
  Sender: FDA-Public Use
  Company Number: FK201100570

PATIENT
  Age: 52 Year
  Sex: Male

DRUGS (2)
  1. CORTICOSTEROIDS (CORTICOSTEROIDS) [Concomitant]
  2. METHYLPREDNISOLONE [Suspect]
     Indication: STEROID THERAPY
     Dosage: ONE COURSE, INTRAVENOUS
     Route: 042

REACTIONS (4)
  - PARAPLEGIA [None]
  - SPINAL CORD DISORDER [None]
  - ARTERIOVENOUS FISTULA [None]
  - MUSCULAR WEAKNESS [None]
